FAERS Safety Report 13781023 (Version 1)
Quarter: 2017Q3

REPORT INFORMATION
  Report Type: Spontaneous
  Country: US (occurrence: US)
  Receive Date: 20170722
  Receipt Date: 20170722
  Transmission Date: 20171127
  Serious: Yes (Other)
  Sender: FDA-Public Use
  Company Number: None

PATIENT
  Age: 53 Year
  Sex: Female
  Weight: 81 kg

DRUGS (7)
  1. 1 A DAY MENOPAUSE VITAMIN [Concomitant]
  2. CIPRO HC [Suspect]
     Active Substance: CIPROFLOXACIN HYDROCHLORIDE\HYDROCORTISONE
     Indication: EAR PAIN
     Dosage: ?          OTHER STRENGTH:ML;QUANTITY:3 DROP(S);?
     Route: 001
     Dates: start: 20170718, end: 20170721
  3. NATURE MADE FISH OIL [Concomitant]
  4. SPRING VALLEY CALCIUM [Concomitant]
  5. NATURE MADE SUPE B-COMPLEX [Concomitant]
  6. 1 A DAY TRU BIOTICS [Concomitant]
  7. ACETAMINOPHEN. [Concomitant]
     Active Substance: ACETAMINOPHEN

REACTIONS (6)
  - Feeling cold [None]
  - Feeling hot [None]
  - Joint stiffness [None]
  - Musculoskeletal stiffness [None]
  - Peripheral swelling [None]
  - Pain in extremity [None]

NARRATIVE: CASE EVENT DATE: 20170721
